FAERS Safety Report 6493048-7 (Version None)
Quarter: 2009Q4

REPORT INFORMATION
  Report Type: 
  Country: None (occurrence: None)
  Receive Date: 20091214
  Receipt Date: 20091203
  Transmission Date: 20100525
  Serious: Yes (Hospitalization)
  Sender: FDA-Public Use
  Company Number: DE-AMGEN-UK378113

PATIENT
  Age: 58 Year

DRUGS (4)
  1. NEULASTA [Suspect]
     Indication: CHEMOTHERAPY
  2. DOCETAXEL [Suspect]
     Route: 041
     Dates: start: 20090928, end: 20090928
  3. EPIRUBICIN [Suspect]
     Route: 041
     Dates: start: 20090928, end: 20090928
  4. CYCLOPHOSPHAMIDE [Suspect]
     Route: 041
     Dates: start: 20090928, end: 20090928

REACTIONS (1)
  - LEUKOPENIA [None]
